FAERS Safety Report 9421976 (Version 2)
Quarter: 2013Q3

REPORT INFORMATION
  Report Type: Spontaneous
  Country: US (occurrence: US)
  Receive Date: 20130726
  Receipt Date: 20130731
  Transmission Date: 20140515
  Serious: Yes (Death, Hospitalization, Other)
  Sender: FDA-Public Use
  Company Number: US-JNJFOC-20130710492

PATIENT
  Sex: 0

DRUGS (4)
  1. DORIPENEM [Suspect]
     Indication: BACTERIAL INFECTION
     Dosage: CRCL 30 ML/MIN OR MORE TO 50 ML/MIN OR LESS
     Route: 042
  2. DORIPENEM [Suspect]
     Indication: BACTERIAL INFECTION
     Dosage: CRCL GREATER THAN 10 TO LESS THAN 30 ML/MIN
     Route: 042
  3. DORIPENEM [Suspect]
     Indication: BACTERIAL INFECTION
     Dosage: FOR CRCL LESS THAN 10 AFTER HEMODIALYSIS
     Route: 042
  4. DORIPENEM [Suspect]
     Indication: BACTERIAL INFECTION
     Dosage: CREATININE CLEARANCE (CRCL) GREATER THAN 50 ML/MIN
     Route: 042

REACTIONS (6)
  - Death [Fatal]
  - Pneumonia [Unknown]
  - Bacteraemia [Unknown]
  - Bacterial infection [Unknown]
  - Infection [Unknown]
  - Treatment failure [Unknown]
